FAERS Safety Report 6243676-9 (Version None)
Quarter: 2009Q2

REPORT INFORMATION
  Report Type: 
  Country: None (occurrence: None)
  Receive Date: 20090618
  Receipt Date: 20090209
  Transmission Date: 20091009
  Serious: Yes (Other)
  Sender: FDA-Public Use
  Company Number: CIP09000333

PATIENT
  Age: 58 Year
  Sex: Female
  Weight: 62.3 kg

DRUGS (3)
  1. ACTONEL [Suspect]
     Dosage: 150 MG 1 DOSE ONLY, ORAL
     Route: 048
     Dates: start: 20090128, end: 20090128
  2. CALCIUM (CALCIUM) [Concomitant]
  3. VITAMIN B12 /00056201/ (CYANOCOBALAMIN) [Concomitant]

REACTIONS (14)
  - ABASIA [None]
  - ACTIVITIES OF DAILY LIVING IMPAIRED [None]
  - ANOREXIA [None]
  - ARTHRALGIA [None]
  - BACK PAIN [None]
  - INFLUENZA LIKE ILLNESS [None]
  - INSOMNIA [None]
  - OEDEMA PERIPHERAL [None]
  - PAIN IN EXTREMITY [None]
  - PAIN IN JAW [None]
  - PELVIC PAIN [None]
  - SWELLING FACE [None]
  - URINARY INCONTINENCE [None]
  - WEIGHT DECREASED [None]
